FAERS Safety Report 5924163-1 (Version None)
Quarter: 2008Q3

REPORT INFORMATION
  Report Type: 
  Country: None (occurrence: None)
  Receive Date: 20080909
  Receipt Date: 20080212
  Transmission Date: 20090109
  Serious: Yes (Death, Other)
  Sender: FDA-Public Use
  Company Number: 163-20785-07121150

PATIENT
  Age: 52 Year
  Sex: Female

DRUGS (2)
  1. THALOMID [Suspect]
     Indication: MULTIPLE MYELOMA
     Dosage: 200 MG, 1 IN 1 D, ORAL
     Route: 048
     Dates: start: 20070419, end: 20070601
  2. THALOMID [Suspect]
     Indication: MULTIPLE MYELOMA
     Dosage: 200 MG, 1 IN 1 D, ORAL
     Route: 048
     Dates: start: 20070718, end: 20071105

REACTIONS (2)
  - BRONCHITIS [None]
  - DEATH [None]
